FAERS Safety Report 23815054 (Version 1)
Quarter: 2024Q2

REPORT INFORMATION
  Report Type: Spontaneous
  Country: US (occurrence: US)
  Receive Date: 20240503
  Receipt Date: 20240503
  Transmission Date: 20240716
  Serious: No
  Sender: FDA-Public Use
  Company Number: US-ViiV Healthcare Limited-110772

PATIENT
  Age: 30 Year
  Sex: Female

DRUGS (1)
  1. DOVATO [Suspect]
     Active Substance: DOLUTEGRAVIR SODIUM\LAMIVUDINE
     Indication: Product used for unknown indication
     Dosage: UNK (STARTED 3 YEARS AGO)
     Dates: start: 2021

REACTIONS (3)
  - Pathogen resistance [Unknown]
  - Viraemia [Unknown]
  - Treatment noncompliance [Unknown]
